FAERS Safety Report 8423115-X (Version None)
Quarter: 2012Q2

REPORT INFORMATION
  Report Type: 
  Country: None (occurrence: None)
  Receive Date: 20120608
  Receipt Date: 20120607
  Transmission Date: 20120825
  Serious: Yes (Hospitalization)
  Sender: FDA-Public Use
  Company Number: US-BAYER-2012-056492

PATIENT
  Age: 50 Year
  Sex: Female

DRUGS (5)
  1. AMANTADINE HCL [Concomitant]
     Dosage: 100 MG, UNK
  2. AMPYRA [Concomitant]
     Dosage: 10 MG, UNK
  3. BETASERON [Suspect]
     Indication: PRODUCT USED FOR UNKNOWN INDICATION
     Dosage: 0.25 MG, QOD
     Route: 058
  4. ALENDRONATE SODIUM [Concomitant]
  5. CALCIUM D [Concomitant]

REACTIONS (2)
  - FALL [None]
  - JAW FRACTURE [None]
